FAERS Safety Report 6415176-4 (Version None)
Quarter: 2009Q4

REPORT INFORMATION
  Report Type: 
  Country: None (occurrence: None)
  Receive Date: 20091027
  Receipt Date: 20091020
  Transmission Date: 20100525
  Serious: Yes (Hospitalization, Congenital Anomaly)
  Sender: FDA-Public Use
  Company Number: SE-WYE-G04520409

PATIENT
  Sex: Female

DRUGS (4)
  1. EFFEXOR [Suspect]
     Dosage: 37.5 MG, FREQUENCY UNKNOWN
     Route: 048
  2. PROPAVAN [Concomitant]
  3. DIGOXIN [Concomitant]
  4. CONFORTID - SLOW RELEASE [Suspect]
     Indication: POLYHYDRAMNIOS
     Route: 048
     Dates: start: 20090601, end: 20090601

REACTIONS (7)
  - HAEMATOMA [None]
  - HYPOTONIA NEONATAL [None]
  - INFANTILE APNOEIC ATTACK [None]
  - MATERNAL DRUGS AFFECTING FOETUS [None]
  - NEONATAL ASPHYXIA [None]
  - PRADER-WILLI SYNDROME [None]
  - PREMATURE BABY [None]
